FAERS Safety Report 8131461-2 (Version None)
Quarter: 2012Q1

REPORT INFORMATION
  Report Type: 
  Country: None (occurrence: None)
  Receive Date: 20120207
  Receipt Date: 20120127
  Transmission Date: 20120608
  Serious: Yes (Life-Threatening, Hospitalization, Other)
  Sender: FDA-Public Use
  Company Number: AUR-APL-2011-05701

PATIENT
  Age: 6 Year
  Sex: Male
  Weight: 23.3 kg

DRUGS (7)
  1. MULTIVITAMIN [Concomitant]
  2. MELOXICAM [Suspect]
     Indication: JUVENILE ARTHRITIS
     Dosage: 2.25 MG (2.25 MG, 1 IN 1 D), ORAL
     Route: 048
     Dates: start: 20100209, end: 20100317
  3. METHOTREXATE [Concomitant]
  4. FOLIC ACID [Concomitant]
  5. ZANTAC [Concomitant]
  6. PEPTO-BISMOL (BISMUTH SUBSALICYLATE) [Concomitant]
  7. CELECOXIB [Suspect]
     Indication: JUVENILE ARTHRITIS

REACTIONS (3)
  - RASH [None]
  - WHITE BLOOD CELL COUNT DECREASED [None]
  - FEBRILE NEUTROPENIA [None]
